FAERS Safety Report 13831889 (Version 1)
Quarter: 2017Q3

REPORT INFORMATION
  Report Type: Spontaneous
  Country: US (occurrence: US)
  Receive Date: 20170803
  Receipt Date: 20170803
  Transmission Date: 20171127
  Serious: No
  Sender: FDA-Public Use
  Company Number: US-ROCHE-676327

PATIENT
  Age: 82 Year
  Sex: Female

DRUGS (10)
  1. FEMARA [Concomitant]
     Active Substance: LETROZOLE
     Dosage: DRUG NAME: FEMERA
     Route: 065
  2. HCTZ [Concomitant]
     Active Substance: HYDROCHLOROTHIAZIDE
     Route: 065
  3. ENALAPRIL [Concomitant]
     Active Substance: ENALAPRIL
     Route: 065
  4. BONIVA [Suspect]
     Active Substance: IBANDRONATE SODIUM
     Indication: OSTEOPOROSIS
     Route: 048
  5. METOPROLOL. [Concomitant]
     Active Substance: METOPROLOL
     Dosage: DRUG NAME: METROPOLOL
     Route: 065
  6. ASPIRIN. [Concomitant]
     Active Substance: ASPIRIN
     Route: 065
  7. CADUET [Concomitant]
     Active Substance: AMLODIPINE BESYLATE\ATORVASTATIN CALCIUM
     Route: 065
  8. DIOVAN [Concomitant]
     Active Substance: VALSARTAN
     Route: 065
  9. CLONIDINE. [Concomitant]
     Active Substance: CLONIDINE
     Route: 065
  10. NITROGLYCERIN. [Concomitant]
     Active Substance: NITROGLYCERIN
     Route: 065

REACTIONS (4)
  - Eructation [Unknown]
  - Back pain [Recovering/Resolving]
  - Nausea [Unknown]
  - Decreased appetite [Unknown]

NARRATIVE: CASE EVENT DATE: 20091215
